FAERS Safety Report 21377721 (Version 2)
Quarter: 2025Q1

REPORT INFORMATION
  Report Type: Spontaneous
  Country: US (occurrence: None)
  Receive Date: 20220926
  Receipt Date: 20250317
  Transmission Date: 20250409
  Serious: No
  Sender: INCYTE
  Company Number: US-INCYTE CORPORATION-2022IN009022

PATIENT

DRUGS (2)
  1. JAKAFI [Suspect]
     Active Substance: RUXOLITINIB
     Indication: Polycythaemia vera
     Dosage: UNK UNK, BID
  2. JAKAFI [Suspect]
     Active Substance: RUXOLITINIB

REACTIONS (2)
  - Back pain [Unknown]
  - Arthralgia [Unknown]
